FAERS Safety Report 6021140-X (Version None)
Quarter: 2008Q4

REPORT INFORMATION
  Report Type: 
  Country: None (occurrence: None)
  Receive Date: 20081229
  Receipt Date: 20081222
  Transmission Date: 20090506
  Serious: Yes (Life-Threatening)
  Sender: FDA-Public Use
  Company Number: FR-AVENTIS-200814566FR

PATIENT
  Age: 70 Year
  Sex: Female

DRUGS (3)
  1. LASIX [Suspect]
     Indication: DRUG USE FOR UNKNOWN INDICATION
     Dates: start: 20080902
  2. BURINEX [Suspect]
     Indication: DRUG USE FOR UNKNOWN INDICATION
     Dosage: DOSE QUANTITY: 15; DAILY DOSE UNIT: MILLIGRAM PER HOUR
     Route: 042
     Dates: start: 20080902
  3. EPHEDRINE HCL 1PC SOL [Suspect]
     Indication: DRUG USE FOR UNKNOWN INDICATION
     Route: 042
     Dates: start: 20080902

REACTIONS (2)
  - ANURIA [None]
  - RENAL FAILURE ACUTE [None]
